FAERS Safety Report 17861025 (Version 1)
Quarter: 2020Q2

REPORT INFORMATION
  Report Type: Spontaneous
  Country: PL (occurrence: PL)
  Receive Date: 20200604
  Receipt Date: 20200604
  Transmission Date: 20200714
  Serious: Yes (Other)
  Sender: FDA-Public Use
  Company Number: PL-JNJFOC-20200602856

PATIENT
  Age: 69 Year
  Sex: Male

DRUGS (1)
  1. RIVAROXABAN [Suspect]
     Active Substance: RIVAROXABAN
     Indication: ATRIAL FIBRILLATION
     Dosage: 20 MG, QD
     Route: 048
     Dates: start: 2015, end: 20200219

REACTIONS (4)
  - Benign prostatic hyperplasia [Unknown]
  - Urinary tract infection bacterial [Not Recovered/Not Resolved]
  - Urinary bladder haemorrhage [Recovered/Resolved]
  - Chromaturia [Unknown]

NARRATIVE: CASE EVENT DATE: 2020
